FAERS Safety Report 7956561-9 (Version None)
Quarter: 2011Q4

REPORT INFORMATION
  Report Type: 
  Country: None (occurrence: None)
  Receive Date: 20111205
  Receipt Date: 20111125
  Transmission Date: 20120403
  Serious: Yes (Other)
  Sender: FDA-Public Use
  Company Number: US-BAYER-2011-053195

PATIENT
  Age: 18 Year
  Sex: Female
  Weight: 85.714 kg

DRUGS (14)
  1. MAGNESIUM HYDROXIDE TAB [Concomitant]
     Indication: VOMITING
  2. NAPROXEN [Concomitant]
     Indication: PAIN
     Dosage: 500 MG, ONCE
     Route: 048
  3. CALCIUM CARBONATE [Concomitant]
     Indication: VOMITING
  4. MYLANTA [CALCIUM CARBONATE] [Concomitant]
     Indication: NAUSEA
     Route: 048
  5. PROMETHAZINE [Concomitant]
     Indication: NAUSEA
     Dosage: 12.5 MG, QID
     Route: 048
  6. ONDANSETRON HYDROCHLORIDE [Concomitant]
     Indication: VOMITING
  7. MAGNESIUM HYDROXIDE TAB [Concomitant]
     Indication: NAUSEA
     Route: 048
  8. MYLANTA [CALCIUM CARBONATE] [Concomitant]
     Indication: VOMITING
  9. IBUPROFEN [Concomitant]
     Indication: PAIN
     Dosage: 800 MG, UNK
  10. ACETAMINOPHEN AND HYDROCODONE BITARTRATE [Concomitant]
     Indication: PAIN
     Dosage: UNK
     Route: 048
     Dates: start: 20100518
  11. ONDANSETRON HYDROCHLORIDE [Concomitant]
     Indication: NAUSEA
     Dosage: 4 MG, UNK
     Route: 048
     Dates: start: 20100518
  12. YAZ [Suspect]
     Indication: PREMENSTRUAL SYNDROME
  13. YAZ [Suspect]
     Indication: CONTRACEPTION
     Dosage: UNK
     Dates: start: 20080501, end: 20100301
  14. CALCIUM CARBONATE [Concomitant]
     Indication: NAUSEA
     Dosage: UNK
     Route: 048
     Dates: start: 20100501

REACTIONS (8)
  - INJURY [None]
  - VOMITING [None]
  - ABDOMINAL PAIN [None]
  - CHOLECYSTITIS CHRONIC [None]
  - CHOLELITHIASIS [None]
  - PAIN [None]
  - NAUSEA [None]
  - PELVIC PAIN [None]
